FAERS Safety Report 4437070-0 (Version None)
Quarter: 2004Q3

REPORT INFORMATION
  Report Type: 
  Country: None (occurrence: None)
  Receive Date: 20040830
  Receipt Date: 20040816
  Transmission Date: 20050211
  Serious: Yes (Other)
  Sender: FDA-Public Use
  Company Number: DE-GLAXOSMITHKLINE-D0044473A

PATIENT
  Age: 43 Year
  Sex: Female

DRUGS (1)
  1. SEROXAT [Suspect]
     Indication: DEPRESSION
     Dosage: 20MG PER DAY
     Route: 065
     Dates: start: 20010101, end: 20040807

REACTIONS (6)
  - DIARRHOEA [None]
  - DIZZINESS [None]
  - NERVOUS SYSTEM DISORDER [None]
  - NEURALGIA [None]
  - VISUAL DISTURBANCE [None]
  - VOMITING [None]
